FAERS Safety Report 11772404 (Version 1)
Quarter: 2015Q4

REPORT INFORMATION
  Report Type: Spontaneous
  Country: US (occurrence: None)
  Receive Date: 20151123
  Receipt Date: 20151123
  Transmission Date: 20160304
  Serious: Yes (Hospitalization, Other)
  Sender: FDA-Public Use
  Company Number: CTI_01816_2015

PATIENT
  Age: 71 Year
  Sex: Male

DRUGS (3)
  1. RECOMBINATIVE (UNKNOWN) [Concomitant]
  2. NICARDIPINE [Suspect]
     Active Substance: NICARDIPINE
     Indication: HYPERTENSION
     Dosage: (DF INTRAVENOUS DRIP)?
     Route: 041
  3. TISSUE PLASMINOGEN ACTIVATOR [Concomitant]
     Active Substance: ALTEPLASE

REACTIONS (5)
  - Blood pressure systolic increased [None]
  - Condition aggravated [None]
  - Brain oedema [None]
  - Neurological decompensation [None]
  - Bradycardia [None]
